FAERS Safety Report 7591960-9 (Version None)
Quarter: 2011Q3

REPORT INFORMATION
  Report Type: 
  Country: None (occurrence: None)
  Receive Date: 20110701
  Receipt Date: 20110701
  Transmission Date: 20111222
  Serious: Yes (Hospitalization, Disabling)
  Sender: FDA-Public Use
  Company Number: None

PATIENT
  Age: 78 Year
  Sex: Female
  Weight: 65.7716 kg

DRUGS (1)
  1. ACTONEL [Suspect]
     Indication: OSTEOPOROSIS
     Dosage: 1 TABLET ONCE A WEEK MOUTH
     Route: 048

REACTIONS (3)
  - PAIN [None]
  - FEMUR FRACTURE [None]
  - STRESS FRACTURE [None]
